FAERS Safety Report 9635996 (Version 2)
Quarter: 2013Q4

REPORT INFORMATION
  Report Type: Spontaneous
  Country: US (occurrence: None)
  Receive Date: 20131017
  Receipt Date: 20131017
  Transmission Date: 20140711
  Serious: Yes (Death)
  Sender: FDA-Public Use
  Company Number: 2013AP008653

PATIENT
  Age: 60 Year
  Sex: Female

DRUGS (7)
  1. AMLODIPINE BESYLATE TABLETS [Suspect]
     Route: 048
  2. METFORMIN [Suspect]
     Route: 048
  3. METOPROLOL [Suspect]
     Route: 048
  4. POTASSIUM [Suspect]
     Route: 048
  5. HYDROCODONE [Suspect]
     Route: 048
  6. SALICYLATES NOS [Suspect]
     Route: 048
  7. ACETAMINOPHEN [Suspect]
     Route: 048

REACTIONS (1)
  - Completed suicide [None]
